FAERS Safety Report 4876491-9 (Version None)
Quarter: 2005Q4

REPORT INFORMATION
  Report Type: 
  Country: None (occurrence: None)
  Receive Date: 20051206
  Receipt Date: 20050927
  Transmission Date: 20060501
  Serious: No
  Sender: FDA-Public Use
  Company Number: USA0510109756

PATIENT
  Age: 22 Year
  Sex: Female

DRUGS (6)
  1. CYMBALTA [Suspect]
  2. CELEXA [Concomitant]
  3. IRON [Concomitant]
  4. BIRTH CONTROL [Concomitant]
  5. TRAZODONE HCL [Concomitant]
  6. NAPROSYN [Concomitant]

REACTIONS (1)
  - AGGRESSION [None]
